FAERS Safety Report 23167124 (Version 1)
Quarter: 2023Q4

REPORT INFORMATION
  Report Type: Spontaneous
  Country: None (occurrence: US)
  Receive Date: 20231109
  Receipt Date: 20231109
  Transmission Date: 20240110
  Serious: No
  Sender: FDA-Public Use
  Company Number: US-Harrow Eye-2148066

PATIENT
  Age: 88 Year
  Sex: Female

DRUGS (3)
  1. MAXITROL [Suspect]
     Active Substance: DEXAMETHASONE\NEOMYCIN SULFATE\POLYMYXIN B SULFATE
     Indication: Ear infection
     Dates: start: 20230403, end: 20230403
  2. MAXITROL [Suspect]
     Active Substance: DEXAMETHASONE\NEOMYCIN SULFATE\POLYMYXIN B SULFATE
     Dates: start: 20230522, end: 20230523
  3. AMOXICILLIN [Concomitant]
     Active Substance: AMOXICILLIN

REACTIONS (11)
  - Ear haemorrhage [Unknown]
  - Throat irritation [Unknown]
  - Oropharyngeal pain [Unknown]
  - Adverse reaction [Unknown]
  - Pharyngeal hypoaesthesia [Unknown]
  - Product taste abnormal [Unknown]
  - Otorrhoea [Unknown]
  - Ear pain [Recovering/Resolving]
  - Ear discomfort [Recovering/Resolving]
  - Accidental exposure to product [Recovering/Resolving]
  - Off label use [Unknown]
